FAERS Safety Report 22210873 (Version 1)
Quarter: 2023Q2

REPORT INFORMATION
  Report Type: Spontaneous
  Country: DE (occurrence: DE)
  Receive Date: 20230414
  Receipt Date: 20230414
  Transmission Date: 20230722
  Serious: Yes (Other)
  Sender: FDA-Public Use
  Company Number: DE-MYLANLABS-2023M1026577

PATIENT
  Age: 76 Year
  Sex: Female
  Weight: 84 kg

DRUGS (7)
  1. CANDESARTAN [Suspect]
     Active Substance: CANDESARTAN
     Indication: Product used for unknown indication
     Dosage: 16 MILLIGRAM, BID (1-0-1)
     Route: 048
  2. DULOXETINE [Suspect]
     Active Substance: DULOXETINE
     Indication: Product used for unknown indication
     Dosage: 60 MILLIGRAM, QD (1-0-0)
     Route: 048
  3. CERTOPARIN SODIUM [Suspect]
     Active Substance: CERTOPARIN SODIUM
     Indication: Embolism venous
     Dosage: UNK UNK, ONCE A DAY(UNK  (3000 UNK, QD))
     Route: 058
  4. CERTOPARIN SODIUM [Suspect]
     Active Substance: CERTOPARIN SODIUM
     Dosage: UNK
  5. METOPROLOL [Suspect]
     Active Substance: METOPROLOL
     Indication: Product used for unknown indication
     Dosage: 47.5 MILLIGRAM, ONCE A DAY(23.75 MILLIGRAM, BID (1-0-1))
     Route: 048
  6. LEVOTHYROXINE [Concomitant]
     Active Substance: LEVOTHYROXINE
     Indication: Product used for unknown indication
     Dosage: UNK UNK, ONCE A DAY(UNK (QD) (1-0-0))
     Route: 048
  7. OLANZAPINE [Concomitant]
     Active Substance: OLANZAPINE
     Indication: Product used for unknown indication
     Dosage: 2.500 MILLIGRAM, QD (0-0-0-1)
     Route: 048

REACTIONS (4)
  - Pulmonary artery thrombosis [Unknown]
  - Pulmonary embolism [Recovered/Resolved]
  - Dyspnoea [Unknown]
  - Product substitution issue [Unknown]

NARRATIVE: CASE EVENT DATE: 20230303
